FAERS Safety Report 6081650-6 (Version None)
Quarter: 2009Q1

REPORT INFORMATION
  Report Type: 
  Country: None (occurrence: None)
  Receive Date: 20090213
  Receipt Date: 20090130
  Transmission Date: 20090719
  Serious: Yes (Other)
  Sender: FDA-Public Use
  Company Number: 2009000292

PATIENT
  Age: 71 Year
  Sex: Male

DRUGS (5)
  1. ERLOTINIB (ERLOTINIB) (TABLET) (ERLOTINIB) [Suspect]
     Indication: LUNG ADENOCARCINOMA
     Dosage: 150 MG, QD, ORAL
     Route: 048
     Dates: start: 20080317, end: 20081014
  2. DIOVAN [Concomitant]
  3. MOBIC [Concomitant]
  4. ROHYPNOL (FLUNITRAZEPAM) [Concomitant]
  5. LENDORM [Concomitant]

REACTIONS (4)
  - CELL MARKER INCREASED [None]
  - DISEASE PROGRESSION [None]
  - NON-SMALL CELL LUNG CANCER STAGE IV [None]
  - RASH PUSTULAR [None]
